FAERS Safety Report 16493680 (Version 1)
Quarter: 2019Q2

REPORT INFORMATION
  Report Type: Spontaneous
  Country: US (occurrence: US)
  Receive Date: 20190628
  Receipt Date: 20190628
  Transmission Date: 20190711
  Serious: Yes (Other)
  Sender: FDA-Public Use
  Company Number: US-PFIZER INC-2019220845

PATIENT
  Age: 65 Year
  Sex: Male
  Weight: 93.44 kg

DRUGS (1)
  1. LYRICA [Suspect]
     Active Substance: PREGABALIN
     Indication: NEUROPATHY PERIPHERAL
     Dosage: 50 MG, 2X/DAY [EVERY 12 TWELVE HOURS]/[MORNING AND ONE IN THE EVENING]
     Route: 048
     Dates: start: 201703

REACTIONS (2)
  - Hepatic cancer [Unknown]
  - Gallbladder disorder [Unknown]
